FAERS Safety Report 9656242 (Version 1)
Quarter: 2013Q4

REPORT INFORMATION
  Report Type: Spontaneous
  Country: US (occurrence: US)
  Receive Date: 20131030
  Receipt Date: 20131030
  Transmission Date: 20140711
  Serious: Yes (Other)
  Sender: FDA-Public Use
  Company Number: US-SA-2013SA109914

PATIENT
  Age: 73 Year
  Sex: Female

DRUGS (4)
  1. LANTUS SOLOSTAR [Suspect]
     Indication: TYPE 2 DIABETES MELLITUS
     Dosage: DOSE:15 UNIT(S)
     Route: 058
  2. METFORMIN [Suspect]
     Indication: DIABETES MELLITUS
  3. GLIPIZIDE [Suspect]
     Indication: DIABETES MELLITUS
     Route: 065
  4. SOLOSTAR [Concomitant]

REACTIONS (2)
  - Liver disorder [Unknown]
  - Weight increased [Unknown]
